FAERS Safety Report 6923308-4 (Version None)
Quarter: 2010Q3

REPORT INFORMATION
  Report Type: 
  Country: None (occurrence: None)
  Receive Date: 20100813
  Receipt Date: 20100806
  Transmission Date: 20110219
  Serious: Yes (Death, Hospitalization, Other)
  Sender: FDA-Public Use
  Company Number: BR-BRISTOL-MYERS SQUIBB COMPANY-15212079

PATIENT
  Age: 64 Year
  Sex: Female
  Weight: 47 kg

DRUGS (6)
  1. BECENUN PWDR FOR INJ 100 MG [Suspect]
     Indication: MULTIPLE MYELOMA
     Dosage: ROUTE:ENDOVENOUS,REDUCED FROM 30MG TO 25MG
     Dates: start: 20100705
  2. BECENUN PWDR FOR INJ 100 MG [Suspect]
     Indication: NEOPLASM MALIGNANT
     Dosage: ROUTE:ENDOVENOUS,REDUCED FROM 30MG TO 25MG
     Dates: start: 20100705
  3. CYCLOPHOSPHAMIDE [Suspect]
  4. VINCRISTINE SULFATE [Suspect]
  5. PREDNISONE [Suspect]
     Route: 048
  6. ONDANSETRON [Concomitant]

REACTIONS (4)
  - DYSPNOEA [None]
  - MALIGNANT NEOPLASM PROGRESSION [None]
  - PYREXIA [None]
  - TREMOR [None]
